FAERS Safety Report 19012079 (Version 4)
Quarter: 2021Q3

REPORT INFORMATION
  Report Type: Spontaneous
  Country: NL (occurrence: NL)
  Receive Date: 20210316
  Receipt Date: 20210804
  Transmission Date: 20211014
  Serious: Yes (Other)
  Sender: FDA-Public Use
  Company Number: NL-STRIDES ARCOLAB LIMITED-2021SP003160

PATIENT
  Age: 24 Year
  Sex: Female

DRUGS (34)
  1. MACROGOL, SODIUM CHLORIDE, POTASSIUM CHLORIDE, SODIUM BICARBONATE [Suspect]
     Active Substance: POLYETHYLENE GLYCOL 3350\POTASSIUM CHLORIDE\SODIUM BICARBONATE\SODIUM CHLORIDE
     Dosage: UNK, DOSE NOT REPORTED
     Route: 065
  2. MACROGOL, SODIUM CHLORIDE, POTASSIUM CHLORIDE, SODIUM BICARBONATE [Suspect]
     Active Substance: POLYETHYLENE GLYCOL 3350\POTASSIUM CHLORIDE\SODIUM BICARBONATE\SODIUM CHLORIDE
     Dosage: UNK
     Route: 065
  3. DULCOLAX (BISACODYL) [Suspect]
     Active Substance: BISACODYL
     Dosage: UNK (DULCOLAX), DOSE NOT REPORTED
     Route: 065
  4. DULCOLAX (BISACODYL) [Suspect]
     Active Substance: BISACODYL
     Dosage: UNK10 MILLIGRAM (BISACODYL 10 MG TEVA )
     Route: 065
  5. DULCOLAX (BISACODYL) [Suspect]
     Active Substance: BISACODYL
     Dosage: UNK, TABLET
     Route: 065
  6. PICOPREP [Suspect]
     Active Substance: ANHYDROUS CITRIC ACID\MAGNESIUM OXIDE\SODIUM PICOSULFATE
     Indication: COLONIC LAVAGE
     Dosage: UNK, DOSE NOT REPORTED, COATED TABLET
     Route: 065
  7. PHOSPHORAL [FOSFOMYCIN TROMETAMOL] [Suspect]
     Active Substance: FOSFOMYCIN TROMETHAMINE
     Indication: CONSTIPATION
     Dosage: UNK, RINSING, APPROX. ONCE EVERY 2 MONTHS; SINCE THE AGE OF APPROX. 14, 2 MONTH
     Route: 065
  8. MACROGOL, SODIUM CHLORIDE, POTASSIUM CHLORIDE, SODIUM BICARBONATE [Suspect]
     Active Substance: POLYETHYLENE GLYCOL 3350\POTASSIUM CHLORIDE\SODIUM BICARBONATE\SODIUM CHLORIDE
     Indication: CONSTIPATION
     Dosage: UNK, SACHETS
     Route: 065
     Dates: start: 2010
  9. MACROGOL, SODIUM CHLORIDE, POTASSIUM CHLORIDE, SODIUM BICARBONATE [Suspect]
     Active Substance: POLYETHYLENE GLYCOL 3350\POTASSIUM CHLORIDE\SODIUM BICARBONATE\SODIUM CHLORIDE
     Dosage: UNK, DOSE NOT REPORTED
     Route: 065
  10. DULCOLAX (BISACODYL) [Suspect]
     Active Substance: BISACODYL
     Indication: CONSTIPATION
     Dosage: UNK(BISACODYL), NOT REPORTED
     Route: 065
  11. DULCOLAX (BISACODYL) [Suspect]
     Active Substance: BISACODYL
     Dosage: UNK, 6?9 TABLETS AVERAGE, Q3D, COATED TABLET
     Route: 065
     Dates: start: 2012
  12. DULCOLAX (BISACODYL) [Suspect]
     Active Substance: BISACODYL
     Dosage: UNK, TABLET
     Route: 065
  13. LACTULOSE. [Suspect]
     Active Substance: LACTULOSE
     Indication: CONSTIPATION
     Dosage: UNK
     Route: 065
     Dates: start: 2010
  14. MACROGOL, SODIUM CHLORIDE, POTASSIUM CHLORIDE, SODIUM BICARBONATE [Suspect]
     Active Substance: POLYETHYLENE GLYCOL 3350\POTASSIUM CHLORIDE\SODIUM BICARBONATE\SODIUM CHLORIDE
     Dosage: UNK
     Route: 065
  15. SODIUM PHOSPHATE [Suspect]
     Active Substance: SODIUM PHOSPHATE
     Dosage: UNK, ENEMA
     Route: 065
     Dates: start: 2010
  16. DULCOLAX (BISACODYL) [Suspect]
     Active Substance: BISACODYL
     Dosage: UNK(BISACODYL), B/W 6 AND 9 TABLETS, EVERY THIRD DAY, ON 2 DAYS IN B/W PATIENT USES 2 BISACODYL, ONL
     Route: 065
  17. DULCOLAX (BISACODYL) [Suspect]
     Active Substance: BISACODYL
     Dosage: UNK, BISACODYL  10MG
     Route: 065
  18. DULCOLAX (BISACODYL) [Suspect]
     Active Substance: BISACODYL
     Dosage: 5 MILLIGRAM, COATED TABLET
     Route: 065
     Dates: start: 2012
  19. SODIUM PHOSPHATE [Suspect]
     Active Substance: SODIUM PHOSPHATE
     Indication: CONSTIPATION
     Dosage: UNK
     Route: 065
     Dates: start: 2010
  20. DULCOLAX (BISACODYL) [Suspect]
     Active Substance: BISACODYL
     Dosage: UNK, BISACODYL  5 MG, COATED TABLET
     Route: 065
  21. DULCOLAX (BISACODYL) [Suspect]
     Active Substance: BISACODYL
     Dosage: ON THE 2 DAYS IN BETWEEN THE PATIENT USES 2 BISACODYL, ONLY IN BAD PERIODS (), BISACODYL 5 MG , COAT
     Route: 065
     Dates: start: 2012
  22. DULCOLAX (BISACODYL) [Suspect]
     Active Substance: BISACODYL
     Dosage: 5 MG 6?9 TABLETS AVERAGE, Q3D(5MG TEVA)
     Route: 065
     Dates: start: 2012
  23. LACTULOSE. [Suspect]
     Active Substance: LACTULOSE
     Dosage: UNK, SINCE THE AGE OF APPROX.14
     Route: 065
     Dates: start: 2010
  24. COLEXTRAN [Suspect]
     Active Substance: INVESTIGATIONAL PRODUCT
     Indication: CONSTIPATION
     Dosage: UNK, AS NECESSARY
     Route: 065
  25. DULCOLAX (BISACODYL) [Suspect]
     Active Substance: BISACODYL
     Dosage: 2 DOSAGE FORM, (BISACODYL) 2 DF, ON THE 2 DAYS IN BETWEEN (COATED TABLET)
     Route: 065
     Dates: start: 2012
  26. DULCOLAX (BISACODYL) [Suspect]
     Active Substance: BISACODYL
     Dosage: ON THE 2 DAYS IN BETWEEN THE PATIENT USES 2 BISACODYL, ONLY IN BAD PERIODS (), BISACODYL 5 MG , COAT
     Route: 065
     Dates: start: 2012
  27. COLEX [CHLORAMPHENICOL PALMITATE] [Suspect]
     Active Substance: CHLORAMPHENICOL PALMITATE
     Indication: CONSTIPATION
     Dosage: UNK, SINCE THE AGE OF APPROX. 14; ONGOING () ; AS NECESSARY
     Route: 054
  28. MACROGOL, SODIUM CHLORIDE, POTASSIUM CHLORIDE, SODIUM BICARBONATE [Suspect]
     Active Substance: POLYETHYLENE GLYCOL 3350\POTASSIUM CHLORIDE\SODIUM BICARBONATE\SODIUM CHLORIDE
     Dosage: UNK, SACHETS, SINCE THE AGE OF APPROX.14
     Route: 065
  29. MACROGOL, SODIUM CHLORIDE, POTASSIUM CHLORIDE, SODIUM BICARBONATE [Suspect]
     Active Substance: POLYETHYLENE GLYCOL 3350\POTASSIUM CHLORIDE\SODIUM BICARBONATE\SODIUM CHLORIDE
     Dosage: UNK, DOSE NOT REPORTED
     Route: 065
  30. MACROGOL, SODIUM CHLORIDE, POTASSIUM CHLORIDE, SODIUM BICARBONATE [Suspect]
     Active Substance: POLYETHYLENE GLYCOL 3350\POTASSIUM CHLORIDE\SODIUM BICARBONATE\SODIUM CHLORIDE
     Dosage: UNK, SACHETS, SINCE THE AGE OF APPROX.14
     Route: 065
     Dates: start: 2010
  31. SODIUM PHOSPHATE [Suspect]
     Active Substance: SODIUM PHOSPHATE
     Dosage: UNK, 40 ML BOTTLES, SINCE THE AGE OF APPROX. 14 (), NATRIUMFOSFAAT
     Route: 048
     Dates: start: 2010
  32. MACROGOL, SODIUM CHLORIDE, POTASSIUM CHLORIDE, SODIUM BICARBONATE [Suspect]
     Active Substance: POLYETHYLENE GLYCOL 3350\POTASSIUM CHLORIDE\SODIUM BICARBONATE\SODIUM CHLORIDE
     Dosage: UNK, CYCLICAL
     Route: 065
  33. DULCOLAX (BISACODYL) [Suspect]
     Active Substance: BISACODYL
     Dosage: 5 MG2 DF, ON THE 2 DAYS IN BETWEEN (5MG TEVA)
     Route: 065
     Dates: start: 2012
  34. COLEXKLYSMA [Suspect]
     Active Substance: PHOSPHORIC ACID\SODIUM PHOSPHATE, DIBASIC
     Indication: CONSTIPATION
     Dosage: ENEMA, WHEN NECESSARY, SINCE THE AGE OF APPROX. 14 ()
     Route: 065

REACTIONS (34)
  - Product residue present [Unknown]
  - Headache [Unknown]
  - Unevaluable event [Unknown]
  - Fear [Unknown]
  - Myalgia [Unknown]
  - Intentional product use issue [Unknown]
  - Anticipatory anxiety [Unknown]
  - Abdominal discomfort [Unknown]
  - Burning sensation [Unknown]
  - Pain [Unknown]
  - Swelling [Unknown]
  - Dyspnoea [Unknown]
  - Weight increased [Unknown]
  - Non-pitting oedema [Unknown]
  - Skin texture abnormal [Unknown]
  - Overweight [Unknown]
  - Skin tightness [Unknown]
  - Constipation [Unknown]
  - Functional gastrointestinal disorder [Unknown]
  - Gastrointestinal motility disorder [Unknown]
  - Brain oedema [Unknown]
  - Fluid retention [Unknown]
  - Muscle oedema [Unknown]
  - Gastrointestinal pain [Unknown]
  - Musculoskeletal stiffness [Unknown]
  - General physical health deterioration [Unknown]
  - Ocular discomfort [Unknown]
  - Overdose [Unknown]
  - Adrenal disorder [Unknown]
  - Paraesthesia [Unknown]
  - Syncope [Unknown]
  - Pulmonary oedema [Unknown]
  - Condition aggravated [Unknown]
  - Drug ineffective [Unknown]

NARRATIVE: CASE EVENT DATE: 2012
